FAERS Safety Report 16123436 (Version 1)
Quarter: 2019Q1

REPORT INFORMATION
  Report Type: Spontaneous
  Country: US (occurrence: US)
  Receive Date: 20190327
  Receipt Date: 20190327
  Transmission Date: 20190418
  Serious: Yes (Life-Threatening, Other)
  Sender: FDA-Public Use
  Company Number: US-ACS-001341

PATIENT
  Age: 78 Year
  Sex: Female

DRUGS (1)
  1. CEFTRIAXONE FOR INJECTION 1G [Suspect]
     Active Substance: CEFTRIAXONE
     Dosage: 1GR GIVEN ON LEFT GLUTEUS
     Route: 065

REACTIONS (1)
  - Anaphylactic reaction [Recovered/Resolved]

NARRATIVE: CASE EVENT DATE: 20190219
